FAERS Safety Report 9343260 (Version 2)
Quarter: 2013Q4

REPORT INFORMATION
  Report Type: Report from Study
  Country: CA (occurrence: CA)
  Receive Date: 20130611
  Receipt Date: 20131111
  Transmission Date: 20140711
  Serious: Yes (Other)
  Sender: FDA-Public Use
  Company Number: CA-ROCHE-803726

PATIENT
  Sex: Female
  Weight: 65 kg

DRUGS (6)
  1. TOCILIZUMAB [Suspect]
     Indication: RHEUMATOID ARTHRITIS
     Dosage: MOST RECENT DOSE ON 08/APR/2013
     Route: 042
     Dates: start: 20110610, end: 20130927
  2. TOCILIZUMAB [Suspect]
     Route: 042
  3. TOCILIZUMAB [Suspect]
     Route: 042
  4. SYNTHROID [Concomitant]
  5. PERCOCET [Concomitant]
     Indication: ARTHRITIS
  6. TYLENOL [Concomitant]
     Dosage: AS NEEDED
     Route: 065

REACTIONS (6)
  - Hepatic lesion [Not Recovered/Not Resolved]
  - Nausea [Not Recovered/Not Resolved]
  - Headache [Not Recovered/Not Resolved]
  - Influenza [Recovered/Resolved]
  - Sinusitis [Not Recovered/Not Resolved]
  - Drug ineffective [Unknown]
